FAERS Safety Report 11830120 (Version 1)
Quarter: 2015Q4

REPORT INFORMATION
  Report Type: Report from Study
  Country: US (occurrence: US)
  Receive Date: 20151214
  Receipt Date: 20151214
  Transmission Date: 20160305
  Serious: No
  Sender: FDA-Public Use
  Company Number: US-AMGEN-USASL2015128983

PATIENT
  Age: 56 Year
  Sex: Female

DRUGS (1)
  1. ENBREL [Suspect]
     Active Substance: ETANERCEPT
     Indication: PRODUCT USED FOR UNKNOWN INDICATION
     Dosage: UNK
     Route: 065
     Dates: start: 20131015

REACTIONS (9)
  - Dyspnoea [Unknown]
  - Nasopharyngitis [Unknown]
  - Ligament sprain [Unknown]
  - Sinusitis [Unknown]
  - Respiratory disorder [Unknown]
  - Hypersensitivity [Unknown]
  - Bone pain [Unknown]
  - Therapeutic response decreased [Unknown]
  - Injection site pain [Unknown]
